FAERS Safety Report 8333213-7 (Version None)
Quarter: 2012Q2

REPORT INFORMATION
  Report Type: 
  Country: None (occurrence: None)
  Receive Date: 20120503
  Receipt Date: 20120430
  Transmission Date: 20120825
  Serious: Yes (Other)
  Sender: FDA-Public Use
  Company Number: US-PFIZER INC-2012106644

PATIENT
  Sex: Female
  Weight: 87.982 kg

DRUGS (2)
  1. ZONISAMIDE [Concomitant]
     Indication: CONVULSION
     Dosage: 100 MG, DAILY
  2. LYRICA [Suspect]
     Indication: FIBROMYALGIA
     Dosage: 100 MG, 2X/DAY
     Dates: start: 20110101, end: 20120424

REACTIONS (1)
  - PAIN IN EXTREMITY [None]
